FAERS Safety Report 5065981-4 (Version None)
Quarter: 2006Q3

REPORT INFORMATION
  Report Type: 
  Country: None (occurrence: None)
  Receive Date: 20060728
  Receipt Date: 20060728
  Transmission Date: 20061208
  Serious: Yes (Hospitalization)
  Sender: FDA-Public Use
  Company Number: None

PATIENT
  Sex: Male
  Weight: 121.8 kg

DRUGS (7)
  1. CAPECITABINE [Suspect]
     Indication: OESOPHAGEAL CARCINOMA
     Dosage: 2150 MG    BID X 14 DAYS   PO
     Route: 048
     Dates: start: 20060628, end: 20060711
  2. OXALIPLATIN [Concomitant]
  3. METFORMIN [Concomitant]
  4. AMARYL [Concomitant]
  5. NEXIUM [Concomitant]
  6. IRON SULFATETHIAMIN COMPOUND TAB [Concomitant]
  7. LIPITOR [Concomitant]

REACTIONS (1)
  - CARDIAC FAILURE CONGESTIVE [None]
